APPROVED DRUG PRODUCT: PROCAINAMIDE HYDROCHLORIDE
Active Ingredient: PROCAINAMIDE HYDROCHLORIDE
Strength: 100MG/ML
Dosage Form/Route: INJECTABLE;INJECTION
Application: A089528 | Product #001
Applicant: WARNER CHILCOTT DIV WARNER LAMBERT CO
Approved: May 3, 1988 | RLD: No | RS: No | Type: DISCN